FAERS Safety Report 23689365 (Version 1)
Quarter: 2024Q1

REPORT INFORMATION
  Report Type: Spontaneous
  Country: CA (occurrence: CA)
  Receive Date: 20240331
  Receipt Date: 20240331
  Transmission Date: 20240410
  Serious: Yes (Other)
  Sender: FDA-Public Use
  Company Number: CA-BAYER-2024A040938

PATIENT
  Age: 34 Year
  Sex: Female
  Weight: 55.782 kg

DRUGS (1)
  1. MIRENA [Suspect]
     Active Substance: LEVONORGESTREL
     Indication: Contraception
     Dosage: 20?G/DAY
     Route: 015

REACTIONS (2)
  - Ovarian cyst [Not Recovered/Not Resolved]
  - Haemorrhagic cyst [Not Recovered/Not Resolved]
